FAERS Safety Report 7109855-3 (Version None)
Quarter: 2010Q4

REPORT INFORMATION
  Report Type: 
  Country: None (occurrence: None)
  Receive Date: 20101118
  Receipt Date: 20101108
  Transmission Date: 20110411
  Serious: Yes (Hospitalization, Disabling)
  Sender: FDA-Public Use
  Company Number: FR-JNJFOC-20101103338

PATIENT
  Sex: Male

DRUGS (12)
  1. HALDOL [Suspect]
     Indication: BIPOLAR DISORDER
     Route: 048
  2. HALDOL [Suspect]
     Route: 048
  3. HALDOL [Suspect]
     Route: 048
  4. TERALITHE [Suspect]
     Indication: BIPOLAR DISORDER
     Route: 065
  5. TERALITHE [Suspect]
     Route: 065
  6. LERCANIDIPINE [Concomitant]
     Indication: HYPERTENSION
     Route: 048
  7. LANTUS [Concomitant]
     Indication: DIABETES MELLITUS
     Route: 058
  8. NOVONORM [Concomitant]
     Indication: DIABETES MELLITUS
     Route: 048
  9. IMOVANE [Concomitant]
     Indication: INSOMNIA
     Route: 048
  10. XYZAL [Concomitant]
     Indication: HYPERSENSITIVITY
     Route: 048
  11. DEPAKOTE [Concomitant]
     Indication: BIPOLAR DISORDER
     Route: 048
  12. DEPAKOTE [Concomitant]
     Route: 048

REACTIONS (2)
  - MANIA [None]
  - SUBDURAL HAEMATOMA [None]
